FAERS Safety Report 15951022 (Version 1)
Quarter: 2019Q1

REPORT INFORMATION
  Report Type: Spontaneous
  Country: US (occurrence: US)
  Receive Date: 20190211
  Receipt Date: 20190211
  Transmission Date: 20190417
  Serious: No
  Sender: FDA-Public Use
  Company Number: US-BAYER-2019-029062

PATIENT
  Age: 71 Year
  Sex: Female
  Weight: 109 kg

DRUGS (3)
  1. INSULIN [Concomitant]
     Active Substance: INSULIN NOS
  2. FIBERCON [Concomitant]
     Active Substance: CALCIUM POLYCARBOPHIL
  3. MIRALAX [Suspect]
     Active Substance: POLYETHYLENE GLYCOL 3350
     Indication: GASTROINTESTINAL DISORDER
     Dosage: 17 G, QD
     Route: 048
     Dates: start: 2018

REACTIONS (2)
  - Poor quality product administered [None]
  - Product contamination physical [None]
